FAERS Safety Report 8996512 (Version 1)
Quarter: 2013Q1

REPORT INFORMATION
  Report Type: Spontaneous
  Country: US (occurrence: US)
  Receive Date: 20130104
  Receipt Date: 20130104
  Transmission Date: 20140127
  Serious: No
  Sender: FDA-Public Use
  Company Number: US-PFIZER INC-2013000453

PATIENT
  Age: 32 Year
  Sex: Male
  Weight: 143 kg

DRUGS (1)
  1. VIAGRA [Suspect]
     Dosage: 100 MG, UNK
     Dates: start: 20121231, end: 20121231

REACTIONS (2)
  - Drug administration error [Recovered/Resolved]
  - Penile swelling [Not Recovered/Not Resolved]
